FAERS Safety Report 24444876 (Version 2)
Quarter: 2024Q4

REPORT INFORMATION
  Report Type: Report from Study
  Country: ZA (occurrence: ZA)
  Receive Date: 20241016
  Receipt Date: 20241017
  Transmission Date: 20250115
  Serious: No
  Sender: ROCHE
  Company Number: ZA-ROCHE-2953291

PATIENT
  Age: 49 Year
  Sex: Male
  Weight: 50.0 kg

DRUGS (4)
  1. MABTHERA [Suspect]
     Active Substance: RITUXIMAB
     Indication: Polymyositis
     Dosage: REPEAT 6MONTHS LATER
     Route: 065
     Dates: start: 201508
  2. MABTHERA [Suspect]
     Active Substance: RITUXIMAB
     Indication: Rheumatoid arthritis
  3. RITUXIMAB [Suspect]
     Active Substance: RITUXIMAB
     Indication: Polymyositis
     Dosage: DAY 0 AND DAY 14 THEN IN 6MONTHS
     Route: 042
  4. RITUXIMAB [Suspect]
     Active Substance: RITUXIMAB
     Indication: Rheumatoid arthritis

REACTIONS (3)
  - Blood creatinine decreased [Unknown]
  - Off label use [Unknown]
  - White blood cell count increased [Unknown]
